FAERS Safety Report 17766581 (Version 1)
Quarter: 2020Q2

REPORT INFORMATION
  Report Type: Spontaneous
  Country: US (occurrence: US)
  Receive Date: 20200511
  Receipt Date: 20200511
  Transmission Date: 20200714
  Serious: No
  Sender: FDA-Public Use
  Company Number: None

PATIENT
  Age: 61 Year
  Sex: Female

DRUGS (1)
  1. SAXAGLIPTIN (SAXAGLIPTIN HCL 5MG TAB) [Suspect]
     Active Substance: SAXAGLIPTIN
     Dates: start: 20180614, end: 20181106

REACTIONS (2)
  - Nausea [None]
  - Vomiting [None]

NARRATIVE: CASE EVENT DATE: 20181107
